FAERS Safety Report 21087759 (Version 1)
Quarter: 2022Q3

REPORT INFORMATION
  Report Type: Spontaneous
  Country: GB (occurrence: GB)
  Receive Date: 20220715
  Receipt Date: 20220715
  Transmission Date: 20221026
  Serious: Yes (Hospitalization, Other)
  Sender: FDA-Public Use
  Company Number: GB-MHRA-MED-202207101534337950-RVNCS

PATIENT
  Age: 80 Year
  Sex: Female
  Weight: 48 kg

DRUGS (1)
  1. PROLIA [Suspect]
     Active Substance: DENOSUMAB
     Indication: Adverse drug reaction
     Dosage: 60 MILLIGRAM, Q6MO
     Route: 065
     Dates: start: 20180509

REACTIONS (2)
  - Spinal fracture [Recovering/Resolving]
  - Medication error [Unknown]

NARRATIVE: CASE EVENT DATE: 20220622
